FAERS Safety Report 5957653-6 (Version None)
Quarter: 2008Q4

REPORT INFORMATION
  Report Type: 
  Country: None (occurrence: None)
  Receive Date: 20081113
  Receipt Date: 20081028
  Transmission Date: 20090506
  Serious: Yes (Other)
  Sender: FDA-Public Use
  Company Number: B0545120A

PATIENT
  Age: 72 Year
  Sex: Female

DRUGS (3)
  1. LAMOTRIGINE [Suspect]
     Indication: DEPRESSION
  2. VALPROIC ACID [Suspect]
     Indication: BIPOLAR I DISORDER
  3. CLOZAPINE [Concomitant]

REACTIONS (8)
  - ASTERIXIS [None]
  - ASTHENIA [None]
  - DRUG INTERACTION [None]
  - ELECTROENCEPHALOGRAM ABNORMAL [None]
  - HYPERAMMONAEMIC ENCEPHALOPATHY [None]
  - LETHARGY [None]
  - TREATMENT NONCOMPLIANCE [None]
  - TREMOR [None]
